FAERS Safety Report 7242366-3 (Version None)
Quarter: 2011Q1

REPORT INFORMATION
  Report Type: 
  Country: None (occurrence: None)
  Receive Date: 20110125
  Receipt Date: 20110111
  Transmission Date: 20110831
  Serious: No
  Sender: FDA-Public Use
  Company Number: US-BIOGENIDEC-2010BI028279

PATIENT
  Age: 58 Year
  Sex: Female

DRUGS (1)
  1. TYSABRI [Suspect]
     Indication: MULTIPLE SCLEROSIS
     Route: 042
     Dates: start: 20081229, end: 20101105

REACTIONS (7)
  - DYSPHAGIA [None]
  - DYSSTASIA [None]
  - HYPOAESTHESIA [None]
  - DYSPNOEA [None]
  - DRUG INEFFECTIVE [None]
  - HEMIPARESIS [None]
  - MOBILITY DECREASED [None]
